FAERS Safety Report 11876631 (Version 2)
Quarter: 2016Q1

REPORT INFORMATION
  Report Type: Report from Study
  Country: BR (occurrence: BR)
  Receive Date: 20151229
  Receipt Date: 20160328
  Transmission Date: 20160526
  Serious: Yes (Other)
  Sender: FDA-Public Use
  Company Number: PHHY2015BR170334

PATIENT
  Age: 12 Year
  Sex: Male
  Weight: 42 kg

DRUGS (4)
  1. HYDROXYUREA. [Concomitant]
     Active Substance: HYDROXYUREA
     Indication: SICKLE CELL ANAEMIA
     Dosage: 2 DF, QD
     Route: 048
  2. EXJADE [Suspect]
     Active Substance: DEFERASIROX
     Indication: SICKLE CELL ANAEMIA
     Dosage: 15 MG/KG, QD (1 DF: 500 MG)
     Route: 048
  3. EXJADE [Suspect]
     Active Substance: DEFERASIROX
     Dosage: 20 MG/KG, QD (2 DF: 1000 MG)
     Route: 048
  4. FOLIC ACID. [Concomitant]
     Active Substance: FOLIC ACID
     Indication: SICKLE CELL ANAEMIA
     Dosage: 1 DF, QD
     Route: 048

REACTIONS (6)
  - Gait disturbance [Unknown]
  - Seizure [Unknown]
  - Serum ferritin increased [Unknown]
  - Speech disorder [Unknown]
  - Cerebrovascular accident [Recovering/Resolving]
  - Dysuria [Unknown]

NARRATIVE: CASE EVENT DATE: 20141104
